FAERS Safety Report 11428896 (Version 1)
Quarter: 2015Q3

REPORT INFORMATION
  Report Type: Spontaneous
  Country: US (occurrence: US)
  Receive Date: 20150828
  Receipt Date: 20150828
  Transmission Date: 20151125
  Serious: No
  Sender: FDA-Public Use
  Company Number: US-ROCHE-1197916

PATIENT
  Age: 51 Year
  Sex: Female

DRUGS (5)
  1. XANAX [Concomitant]
     Active Substance: ALPRAZOLAM
     Route: 065
  2. PRILOSEC [Concomitant]
     Active Substance: OMEPRAZOLE MAGNESIUM
     Route: 065
  3. PEGASYS [Suspect]
     Active Substance: PEGINTERFERON ALFA-2A
     Indication: HEPATITIS C
     Dosage: PROCLICK AUTOINJECTOR
     Route: 058
     Dates: start: 20130301
  4. TYLENOL [Concomitant]
     Active Substance: ACETAMINOPHEN
     Indication: PREMEDICATION
     Route: 048
  5. RIBASPHERE [Suspect]
     Active Substance: RIBAVIRIN
     Indication: HEPATITIS C
     Dosage: DIVIDED DOSE 600 AND 400
     Route: 048
     Dates: start: 20130301

REACTIONS (19)
  - Vomiting [Recovering/Resolving]
  - Injection site erythema [Unknown]
  - Tachycardia [Recovered/Resolved]
  - Back pain [Unknown]
  - Abdominal pain [Recovering/Resolving]
  - Anxiety [Recovered/Resolved]
  - Hair texture abnormal [Unknown]
  - Platelet count decreased [Unknown]
  - Asthenia [Unknown]
  - Nausea [Unknown]
  - Constipation [Unknown]
  - Skin exfoliation [Unknown]
  - Hyperhidrosis [Recovered/Resolved]
  - White blood cell count decreased [Unknown]
  - Influenza [Unknown]
  - Gastroenteritis viral [Unknown]
  - Fatigue [Unknown]
  - Pain [Unknown]
  - Alopecia [Unknown]

NARRATIVE: CASE EVENT DATE: 20130303
